FAERS Safety Report 6231859-3 (Version None)
Quarter: 2009Q2

REPORT INFORMATION
  Report Type: 
  Country: None (occurrence: None)
  Receive Date: 20090612
  Receipt Date: 20090612
  Transmission Date: 20091009
  Serious: Yes (Other)
  Sender: FDA-Public Use
  Company Number: None

PATIENT
  Age: 56 Year
  Sex: Male
  Weight: 95.2554 kg

DRUGS (1)
  1. METFORMIN HCL [Suspect]
     Indication: DIABETES MELLITUS
     Dosage: TAKE ONE TABLE EVERY DAY PO
     Route: 048
     Dates: start: 20090415, end: 20090502

REACTIONS (5)
  - HOT FLUSH [None]
  - HYPOAESTHESIA [None]
  - LIVER INJURY [None]
  - NAUSEA [None]
  - PERIPHERAL COLDNESS [None]
